FAERS Safety Report 19429443 (Version 1)
Quarter: 2021Q2

REPORT INFORMATION
  Report Type: Spontaneous
  Country: CN (occurrence: CN)
  Receive Date: 20210617
  Receipt Date: 20210617
  Transmission Date: 20210717
  Serious: Yes (Hospitalization, Other)
  Sender: FDA-Public Use
  Company Number: CN-ACCORD-227786

PATIENT
  Age: 68 Year
  Sex: Female

DRUGS (2)
  1. DURVALUMAB. [Concomitant]
     Active Substance: DURVALUMAB
     Indication: SMALL CELL LUNG CANCER EXTENSIVE STAGE
     Dosage: FIRST CYCLE (DURVALUMAB 1,500 MG DAY 1)
     Dates: start: 201908, end: 20190828
  2. ETOPOSIDE. [Suspect]
     Active Substance: ETOPOSIDE
     Indication: SMALL CELL LUNG CANCER EXTENSIVE STAGE
     Dosage: FIRST CYCLE (ETOPOSIDE 120 MG DAY 1?3)
     Dates: start: 201908, end: 20190828

REACTIONS (4)
  - Upper gastrointestinal haemorrhage [Recovering/Resolving]
  - Asthenia [Recovering/Resolving]
  - Anaemia [Recovering/Resolving]
  - Myelosuppression [Recovered/Resolved]

NARRATIVE: CASE EVENT DATE: 201909
